FAERS Safety Report 10974330 (Version 3)
Quarter: 2016Q3

REPORT INFORMATION
  Report Type: Spontaneous
  Country: US (occurrence: US)
  Receive Date: 20150401
  Receipt Date: 20160711
  Transmission Date: 20161109
  Serious: Yes (Hospitalization)
  Sender: FDA-Public Use
  Company Number: US-009507513-1503USA015130

PATIENT
  Sex: Male

DRUGS (3)
  1. PROPECIA [Suspect]
     Active Substance: FINASTERIDE
     Indication: ANDROGENETIC ALOPECIA
     Dosage: 1 MG, QD
     Route: 048
     Dates: start: 200505, end: 200803
  2. PROPECIA [Suspect]
     Active Substance: FINASTERIDE
     Indication: ALOPECIA
     Dosage: 1 MG, UNKNOWN
     Route: 048
     Dates: start: 200803, end: 201203
  3. FINASTERIDE. [Suspect]
     Active Substance: FINASTERIDE
     Indication: ANDROGENETIC ALOPECIA
     Dosage: 1 MG, QD
     Route: 048
     Dates: start: 20130424

REACTIONS (14)
  - Upper respiratory tract infection [Unknown]
  - Cognitive disorder [Not Recovered/Not Resolved]
  - Hydrocele [Unknown]
  - Erectile dysfunction [Unknown]
  - Loss of libido [Unknown]
  - Testicular pain [Unknown]
  - Sinusitis [Unknown]
  - Hydrocele [Unknown]
  - Dyslipidaemia [Unknown]
  - Sexual dysfunction [Not Recovered/Not Resolved]
  - Impaired fasting glucose [Unknown]
  - Seasonal allergy [Unknown]
  - Gynaecomastia [Unknown]
  - Pharyngitis [Unknown]

NARRATIVE: CASE EVENT DATE: 2006
